FAERS Safety Report 24434195 (Version 1)
Quarter: 2024Q4

REPORT INFORMATION
  Report Type: Spontaneous
  Country: GB (occurrence: GB)
  Receive Date: 20241014
  Receipt Date: 20241014
  Transmission Date: 20250115
  Serious: Yes (Disabling, Other)
  Sender: TEVA
  Company Number: None

PATIENT
  Age: 75 Year
  Sex: Male
  Weight: 65 kg

DRUGS (4)
  1. EZETIMIBE [Suspect]
     Active Substance: EZETIMIBE
     Indication: Blood cholesterol
     Dosage: BEMPEDOIC ACID 180MG / EZETIMIBE 10MG
     Route: 065
     Dates: start: 202307, end: 20240818
  2. MIRTAZAPINE [Concomitant]
     Active Substance: MIRTAZAPINE
     Dates: start: 20161016
  3. BEMPEDOIC ACID [Suspect]
     Active Substance: BEMPEDOIC ACID
     Indication: Blood cholesterol increased
     Dosage: BEMPEDOIC ACID 180MG / EZETIMIBE 10MG
     Route: 065
     Dates: start: 202307, end: 20240818
  4. RABEPRAZOLE [Concomitant]
     Active Substance: RABEPRAZOLE
     Dates: start: 20001215

REACTIONS (5)
  - Tendon rupture [Recovered/Resolved with Sequelae]
  - Tendon injury [Unknown]
  - Muscle injury [Unknown]
  - Gait inability [Unknown]
  - Muscle rupture [Recovered/Resolved with Sequelae]

NARRATIVE: CASE EVENT DATE: 20230817
